FAERS Safety Report 17966604 (Version 11)
Quarter: 2023Q4

REPORT INFORMATION
  Report Type: Spontaneous
  Country: CA (occurrence: CA)
  Receive Date: 20200701
  Receipt Date: 20231108
  Transmission Date: 20240109
  Serious: Yes (Other)
  Sender: FDA-Public Use
  Company Number: CA-CELLTRION INC.-2019CA025253

PATIENT

DRUGS (17)
  1. INFLECTRA [Suspect]
     Active Substance: INFLIXIMAB-DYYB
     Indication: Colitis ulcerative
     Dosage: 10 MG/KG, 900 MG, EVERY 6 WEEKS
     Route: 042
     Dates: start: 20190923
  2. INFLECTRA [Suspect]
     Active Substance: INFLIXIMAB-DYYB
     Dosage: 10 MG/KG, 900 MG, EVERY 6 WEEKS
     Route: 042
     Dates: start: 20191105
  3. INFLECTRA [Suspect]
     Active Substance: INFLIXIMAB-DYYB
     Dosage: 10 MG/KG, 900 MG, EVERY 6 WEEKS
     Route: 042
     Dates: start: 20191218
  4. INFLECTRA [Suspect]
     Active Substance: INFLIXIMAB-DYYB
     Dosage: 10 MG/KG (900 MG EVERY 6 WEEKS)
     Route: 042
     Dates: start: 20200602
  5. INFLECTRA [Suspect]
     Active Substance: INFLIXIMAB-DYYB
     Dosage: 10 MG/KG EVERY 6 WEEKS/ UNKNOWN (INFLECTRA SWITCH IN UK)
     Route: 041
     Dates: start: 20200717, end: 20200717
  6. INFLECTRA [Suspect]
     Active Substance: INFLIXIMAB-DYYB
     Dosage: 10 MG/KG
     Route: 041
     Dates: start: 20200917
  7. INFLECTRA [Suspect]
     Active Substance: INFLIXIMAB-DYYB
     Dosage: 10 MG/KG (900 MG EVERY 8 WEEKS)
     Route: 042
     Dates: start: 20201117
  8. INFLECTRA [Suspect]
     Active Substance: INFLIXIMAB-DYYB
     Dosage: 10 MG/KG (900 MG EVERY 8 WEEKS)
     Route: 042
     Dates: start: 20210114
  9. INFLECTRA [Suspect]
     Active Substance: INFLIXIMAB-DYYB
     Dosage: 10 MG/KG (900 MG EVERY 8 WEEKS)
     Route: 042
     Dates: start: 20210310
  10. INFLECTRA [Suspect]
     Active Substance: INFLIXIMAB-DYYB
     Dosage: 10 MG/KG (900 MG EVERY 8 WEEKS)
     Route: 042
     Dates: start: 20210507
  11. INFLECTRA [Suspect]
     Active Substance: INFLIXIMAB-DYYB
     Dosage: 10 MG/KG (900 MG EVERY 8 WEEKS)
     Route: 042
     Dates: start: 20210629
  12. INFLECTRA [Suspect]
     Active Substance: INFLIXIMAB-DYYB
     Dosage: 10 MG/KG (900 MG EVERY 8 WEEKS)
     Route: 042
     Dates: start: 20210825
  13. INFLECTRA [Suspect]
     Active Substance: INFLIXIMAB-DYYB
     Dosage: 10 MG/KG (900 MG EVERY 8 WEEKS)
     Route: 042
     Dates: start: 20210825
  14. INFLECTRA [Suspect]
     Active Substance: INFLIXIMAB-DYYB
     Dosage: 10 MG/KG (900 MG EVERY 8 WEEKS)
     Route: 042
     Dates: start: 20230902
  15. INFLECTRA [Suspect]
     Active Substance: INFLIXIMAB-DYYB
     Dosage: 10 MG/KG EVERY 8 WEEKS, (900 MG EVERY 8 WEEKS)
     Route: 042
     Dates: start: 20231030
  16. PREDNISONE [Concomitant]
     Active Substance: PREDNISONE
     Dosage: 50 MG
     Route: 048
  17. PREDNISONE [Concomitant]
     Active Substance: PREDNISONE
     Dosage: 50 MG

REACTIONS (10)
  - Condition aggravated [Not Recovered/Not Resolved]
  - Heart rate decreased [Unknown]
  - Lipase increased [Unknown]
  - Dermatitis psoriasiform [Unknown]
  - Drug level above therapeutic [Unknown]
  - Seasonal allergy [Unknown]
  - Skin exfoliation [Unknown]
  - Intentional product use issue [Unknown]
  - Off label use [Unknown]
  - Off label use [Unknown]

NARRATIVE: CASE EVENT DATE: 20190923
